FAERS Safety Report 5857178-2 (Version None)
Quarter: 2008Q3

REPORT INFORMATION
  Report Type: 
  Country: None (occurrence: None)
  Receive Date: 20080825
  Receipt Date: 20080818
  Transmission Date: 20090109
  Serious: Yes (Hospitalization)
  Sender: FDA-Public Use
  Company Number: PHHY2008GR15796

PATIENT
  Sex: Female
  Weight: 14 kg

DRUGS (2)
  1. EXJADE [Suspect]
     Indication: THALASSAEMIA BETA
     Dosage: 250 MG, QD, 20 MG/KG
     Route: 048
     Dates: start: 20080713, end: 20080720
  2. RED BLOOD CELLS [Concomitant]
     Dosage: 110 CC, EVERY 25 DAYS

REACTIONS (7)
  - HAEMORRHAGIC URTICARIA [None]
  - MALAISE [None]
  - PRURITUS [None]
  - PYREXIA [None]
  - RASH ERYTHEMATOUS [None]
  - RASH PAPULAR [None]
  - SKIN LESION [None]
